FAERS Safety Report 8502728-0 (Version None)
Quarter: 2012Q3

REPORT INFORMATION
  Report Type: 
  Country: None (occurrence: None)
  Receive Date: 20120711
  Receipt Date: 20120702
  Transmission Date: 20120928
  Serious: Yes (Hospitalization)
  Sender: FDA-Public Use
  Company Number: US-VERTEX PHARMACEUTICALS INC.-AE-2012-008517

PATIENT
  Sex: Female
  Weight: 59.928 kg

DRUGS (7)
  1. RIBAVIRIN [Concomitant]
     Dates: start: 20120423
  2. RIBAVIRIN [Concomitant]
     Indication: HEPATITIS C
     Route: 048
     Dates: start: 20120124
  3. INCIVEK [Suspect]
     Indication: HEPATITIS C
     Route: 048
     Dates: start: 20120124, end: 20120415
  4. PEGASYS [Concomitant]
     Dates: start: 20120423
  5. RIBAVIRIN [Concomitant]
     Route: 048
  6. PEGASYS [Concomitant]
     Indication: HEPATITIS C
     Route: 058
     Dates: start: 20120124, end: 20120415
  7. RIBAVIRIN [Concomitant]
     Dates: end: 20120415

REACTIONS (4)
  - DRUG RASH WITH EOSINOPHILIA AND SYSTEMIC SYMPTOMS [None]
  - MALAISE [None]
  - ANAEMIA [None]
  - MYALGIA [None]
